FAERS Safety Report 6334977-4 (Version None)
Quarter: 2009Q3

REPORT INFORMATION
  Report Type: 
  Country: None (occurrence: None)
  Receive Date: 20090827
  Receipt Date: 20090821
  Transmission Date: 20100115
  Serious: Yes (Other)
  Sender: FDA-Public Use
  Company Number: 6052640

PATIENT
  Sex: Female

DRUGS (1)
  1. EUTHYROX 25 (LEVOTHYROXINE SODIUM) [Suspect]
     Indication: HYPOTHYROIDISM
     Dosage: 25 MCG (25 MCG, 1 IN 1 D) ORAL
     Route: 048
     Dates: start: 20090616

REACTIONS (7)
  - CHEST DISCOMFORT [None]
  - DYSPNOEA [None]
  - HYPERSENSITIVITY [None]
  - HYPOVENTILATION [None]
  - MALAISE [None]
  - MUSCLE SPASMS [None]
  - PALPITATIONS [None]
